FAERS Safety Report 19182939 (Version 1)
Quarter: 2021Q2

REPORT INFORMATION
  Report Type: Spontaneous
  Country: US (occurrence: US)
  Receive Date: 20210427
  Receipt Date: 20210427
  Transmission Date: 20210717
  Serious: No
  Sender: FDA-Public Use
  Company Number: US-JNJFOC-20210429799

PATIENT
  Age: 47 Year
  Sex: Female
  Weight: 49.94 kg

DRUGS (3)
  1. COVID?19 VACCINE NOS. [Concomitant]
     Active Substance: COVID-19 VACCINE NOS
     Indication: PRODUCT USED FOR UNKNOWN INDICATION
     Route: 030
     Dates: start: 20210412, end: 20210412
  2. MOTRIN [Suspect]
     Active Substance: IBUPROFEN
     Indication: PAIN IN EXTREMITY
  3. MOTRIN [Suspect]
     Active Substance: IBUPROFEN
     Indication: CHILLS
     Route: 065
     Dates: start: 20210412

REACTIONS (2)
  - Therapeutic response unexpected [Unknown]
  - Product use in unapproved indication [Unknown]

NARRATIVE: CASE EVENT DATE: 20210412
